FAERS Safety Report 5271081-0 (Version None)
Quarter: 2007Q1

REPORT INFORMATION
  Report Type: 
  Country: None (occurrence: None)
  Receive Date: 20070321
  Receipt Date: 20070316
  Transmission Date: 20070707
  Serious: Yes (Hospitalization)
  Sender: FDA-Public Use
  Company Number: JP-GLAXOSMITHKLINE-B0456435A

PATIENT
  Age: 37 Year
  Sex: Male

DRUGS (13)
  1. EPIVIR [Suspect]
     Indication: HIV INFECTION
     Dosage: 150MG TWICE PER DAY
     Route: 048
     Dates: start: 20050329
  2. ZERIT [Suspect]
     Indication: HIV INFECTION
     Route: 048
     Dates: start: 20050329, end: 20060323
  3. KALETRA [Suspect]
     Indication: HIV INFECTION
     Dosage: 6CAP PER DAY
     Route: 048
     Dates: start: 20050329
  4. DENOSINE (GANCICLOVIR) [Suspect]
     Indication: CYTOMEGALOVIRUS ENTEROCOLITIS
     Dosage: 5MGK TWICE PER DAY
     Route: 042
     Dates: start: 20050311, end: 20050424
  5. VALIXA [Suspect]
     Indication: CYTOMEGALOVIRUS ENTEROCOLITIS
     Dosage: 900MG TWICE PER DAY
     Route: 048
     Dates: start: 20050425, end: 20050721
  6. BAKTAR [Suspect]
     Indication: ANTIFUNGAL PROPHYLAXIS
     Dosage: 1TAB PER DAY
     Route: 048
     Dates: start: 20050312, end: 20050406
  7. LECTISOL [Suspect]
     Indication: ANTIFUNGAL PROPHYLAXIS
     Dosage: 50MG PER DAY
     Route: 048
     Dates: start: 20050623, end: 20050628
  8. ZIAGEN [Concomitant]
     Indication: ACQUIRED IMMUNODEFICIENCY SYNDROME
     Dosage: 300MG TWICE PER DAY
     Route: 048
     Dates: start: 20060324
  9. ZITHROMAC [Concomitant]
     Indication: OPPORTUNISTIC INFECTION PROPHYLAXIS
     Route: 048
     Dates: start: 20050313, end: 20051205
  10. PENTAMIDINE ISETHIONATE [Concomitant]
     Indication: ANTIFUNGAL PROPHYLAXIS
     Dosage: 300MG IN THE MORNING
     Route: 055
     Dates: start: 20050418, end: 20050518
  11. CORTRIL [Concomitant]
     Indication: ADRENAL INSUFFICIENCY
     Route: 065
     Dates: start: 20050503
  12. DIFLUCAN [Concomitant]
     Indication: ORAL CANDIDIASIS
     Route: 065
     Dates: start: 20050610, end: 20050622
  13. FUNGIZONE [Concomitant]
     Indication: ORAL CANDIDIASIS
     Dosage: 1ML THREE TIMES PER DAY
     Route: 048
     Dates: start: 20050621, end: 20051205

REACTIONS (8)
  - BACK PAIN [None]
  - CEREBRAL TOXOPLASMOSIS [None]
  - DISORIENTATION [None]
  - HERPES ZOSTER [None]
  - IMMUNE RECONSTITUTION SYNDROME [None]
  - NEUTROPHIL COUNT DECREASED [None]
  - PAIN IN EXTREMITY [None]
  - RASH [None]
